FAERS Safety Report 4700868-5 (Version None)
Quarter: 2005Q2

REPORT INFORMATION
  Report Type: 
  Country: None (occurrence: None)
  Receive Date: 20050114
  Receipt Date: 20050114
  Transmission Date: 20051028
  Serious: Yes (Other)
  Sender: FDA-Public Use
  Company Number: None

PATIENT
  Sex: Female

DRUGS (4)
  1. DARVOCET-N 100 [Suspect]
     Indication: FALL
     Dosage: ONE PO Q 4 HOURS
     Route: 048
     Dates: start: 20000101
  2. DARVOCET-N 100 [Suspect]
     Indication: HEADACHE
     Dosage: ONE PO Q 4 HOURS
     Route: 048
     Dates: start: 20000101
  3. DARVOCET-N 100 [Suspect]
     Indication: NECK PAIN
     Dosage: ONE PO Q 4 HOURS
     Route: 048
     Dates: start: 20000101
  4. NEURONTIN [Concomitant]

REACTIONS (2)
  - DRUG INEFFECTIVE [None]
  - NAUSEA [None]
